FAERS Safety Report 5358528-6 (Version None)
Quarter: 2007Q2

REPORT INFORMATION
  Report Type: 
  Country: None (occurrence: None)
  Receive Date: 20070614
  Receipt Date: 20070614
  Transmission Date: 20071010
  Serious: Yes (Death, Life-Threatening, Hospitalization)
  Sender: FDA-Public Use
  Company Number: None

PATIENT
  Age: 73 Year
  Sex: Male

DRUGS (10)
  1. WARFARIN SODIUM [Suspect]
     Indication: ATRIAL FIBRILLATION
     Dosage: PO
     Route: 048
  2. FUROSEMIDE [Concomitant]
  3. DIGOXIN [Concomitant]
  4. CARVEDILOL [Concomitant]
  5. PROVENTIL MDI [Concomitant]
  6. ESOMEPRAZOLE MAGNESIUM [Concomitant]
  7. CALCIUM ACETATE [Concomitant]
  8. SPIRONOLACTONE [Concomitant]
  9. SUCRALFATE [Concomitant]
  10. MIDODRINE [Concomitant]

REACTIONS (7)
  - BRAIN CONTUSION [None]
  - CONVULSION [None]
  - FALL [None]
  - HEAD INJURY [None]
  - INTERNATIONAL NORMALISED RATIO DECREASED [None]
  - NEUROLOGICAL SYMPTOM [None]
  - SUBARACHNOID HAEMORRHAGE [None]
